FAERS Safety Report 14980389 (Version 3)
Quarter: 2018Q3

REPORT INFORMATION
  Report Type: Report from Study
  Country: TW (occurrence: TW)
  Receive Date: 20180606
  Receipt Date: 20180927
  Transmission Date: 20181010
  Serious: Yes (Death, Hospitalization, Other)
  Sender: FDA-Public Use
  Company Number: TW-TAKEDA-2018TUS017590

PATIENT
  Age: 78 Year
  Sex: Female

DRUGS (6)
  1. TRAMADOL. [Concomitant]
     Active Substance: TRAMADOL
     Dosage: 50 MG, Q12H
  2. LANSOPRAZOLE. [Concomitant]
     Active Substance: LANSOPRAZOLE
     Dosage: 30 MG, QD
  3. FOLIROMIN [Concomitant]
     Dosage: 50 MG, QD
  4. PREDNISOLONE. [Concomitant]
     Active Substance: PREDNISOLONE
     Dosage: 5 MG, QD
  5. TACROLIMUS. [Concomitant]
     Active Substance: TACROLIMUS
     Dosage: 1 MG, QOD
  6. VEDOLIZUMAB [Suspect]
     Active Substance: VEDOLIZUMAB
     Indication: CROHN^S DISEASE
     Dosage: 300 MG, UNK
     Route: 042
     Dates: start: 20171208, end: 20180518

REACTIONS (5)
  - Sepsis [Fatal]
  - Intestinal obstruction [Unknown]
  - Nausea [Unknown]
  - Upper gastrointestinal haemorrhage [Not Recovered/Not Resolved]
  - Abdominal pain [Unknown]
